FAERS Safety Report 6910786-X (Version None)
Quarter: 2010Q3

REPORT INFORMATION
  Report Type: 
  Country: None (occurrence: None)
  Receive Date: 20100716
  Receipt Date: 20091217
  Transmission Date: 20110219
  Serious: Yes (Other)
  Sender: FDA-Public Use
  Company Number: 2009297067

PATIENT
  Age: 52 Year
  Sex: Female
  Weight: 59 kg

DRUGS (1)
  1. CELEBREX [Suspect]
     Indication: ARTHRITIS
     Dosage: DAILY, ORAL
     Route: 048

REACTIONS (1)
  - RASH [None]
